FAERS Safety Report 10993962 (Version 2)
Quarter: 2015Q2

REPORT INFORMATION
  Report Type: Spontaneous
  Country: SE (occurrence: SE)
  Receive Date: 20150407
  Receipt Date: 20150424
  Transmission Date: 20150821
  Serious: No
  Sender: FDA-Public Use
  Company Number: SE-SA-2015SA042588

PATIENT
  Age: 75 Year
  Sex: Female

DRUGS (3)
  1. THIAZIDES [Concomitant]
     Active Substance: UNSPECIFIED INGREDIENT
     Route: 065
     Dates: end: 2015
  2. MULTAQ [Suspect]
     Active Substance: DRONEDARONE
     Indication: ATRIAL FIBRILLATION
     Route: 048
     Dates: start: 20150218
  3. WARAN [Concomitant]
     Active Substance: WARFARIN SODIUM
     Route: 065

REACTIONS (2)
  - Hepatic function abnormal [Unknown]
  - Blood creatinine increased [Unknown]

NARRATIVE: CASE EVENT DATE: 20150304
